FAERS Safety Report 25147932 (Version 2)
Quarter: 2025Q2

REPORT INFORMATION
  Report Type: Spontaneous
  Country: US (occurrence: US)
  Receive Date: 20250402
  Receipt Date: 20250502
  Transmission Date: 20250716
  Serious: No
  Sender: AMGEN
  Company Number: US-AMGEN-USASP2025060593

PATIENT
  Sex: Female

DRUGS (2)
  1. PROLIA [Suspect]
     Active Substance: DENOSUMAB
     Indication: Product used for unknown indication
     Route: 065
  2. PROLIA [Suspect]
     Active Substance: DENOSUMAB
     Route: 065

REACTIONS (5)
  - Adverse drug reaction [Recovered/Resolved]
  - Therapy non-responder [Unknown]
  - Osteopenia [Unknown]
  - Osteoporosis [Unknown]
  - Therapy interrupted [Unknown]
